FAERS Safety Report 9339073 (Version 7)
Quarter: 2016Q1

REPORT INFORMATION
  Report Type: Spontaneous
  Country: US (occurrence: US)
  Receive Date: 20130610
  Receipt Date: 20160216
  Transmission Date: 20160526
  Serious: Yes (Hospitalization, Other)
  Sender: FDA-Public Use
  Company Number: US-009507513-1305USA017831

PATIENT
  Sex: Female
  Weight: 64.4 kg

DRUGS (3)
  1. FOSAMAX [Suspect]
     Active Substance: ALENDRONATE SODIUM
     Indication: OSTEOPOROSIS PROPHYLAXIS
     Dosage: 70 MG, QW
     Route: 048
     Dates: start: 2003, end: 200701
  2. FOSAMAX PLUS D [Suspect]
     Active Substance: ALENDRONATE SODIUM\CHOLECALCIFEROL
     Indication: OSTEOPOROSIS PROPHYLAXIS
     Dosage: 70 MG-2800 UNIT, QW
     Route: 048
     Dates: start: 200701, end: 200901
  3. ALENDRONATE SODIUM. [Suspect]
     Active Substance: ALENDRONATE SODIUM
     Indication: OSTEOPOROSIS
     Dosage: 70 MG, QW
     Route: 048
     Dates: start: 200901, end: 201208

REACTIONS (30)
  - Bladder transitional cell carcinoma [Unknown]
  - Borderline glaucoma [Unknown]
  - Vascular calcification [Unknown]
  - Radiotherapy to uterus [Unknown]
  - Basal cell carcinoma [Unknown]
  - Seborrhoeic keratosis [Unknown]
  - Large intestine polyp [Unknown]
  - Conjunctivitis [Unknown]
  - Hormone therapy [Unknown]
  - Dizziness [Unknown]
  - Calcium deficiency [Unknown]
  - Solar dermatitis [Unknown]
  - Cataract [Unknown]
  - Uterine cancer [Unknown]
  - Plantar fasciitis [Unknown]
  - Orthostatic hypotension [Unknown]
  - Intramedullary rod insertion [Unknown]
  - Senile osteoporosis [Unknown]
  - Open angle glaucoma [Unknown]
  - Skin lesion [Unknown]
  - Oestrogen therapy [Unknown]
  - Melanocytic naevus [Unknown]
  - Transurethral bladder resection [Unknown]
  - Arthralgia [Unknown]
  - Gastritis [Unknown]
  - Basal cell carcinoma [Unknown]
  - Basal cell carcinoma [Unknown]
  - Femur fracture [Unknown]
  - Hypotension [Recovering/Resolving]
  - Blood glucose abnormal [Unknown]

NARRATIVE: CASE EVENT DATE: 2005
